FAERS Safety Report 5145981-6 (Version None)
Quarter: 2006Q4

REPORT INFORMATION
  Report Type: 
  Country: None (occurrence: None)
  Receive Date: 20061106
  Receipt Date: 20061106
  Transmission Date: 20070319
  Serious: Yes (Hospitalization)
  Sender: FDA-Public Use
  Company Number: None

PATIENT
  Age: 54 Year
  Sex: Male
  Weight: 100 kg

DRUGS (1)
  1. BETA INTERFERON [Suspect]
     Dosage: 28.8 MU DAILY SQ
     Route: 058
     Dates: start: 20060707, end: 20060817

REACTIONS (5)
  - COORDINATION ABNORMAL [None]
  - DISEASE PROGRESSION [None]
  - LESION EXCISION [None]
  - MUSCULAR WEAKNESS [None]
  - SPINAL CORD COMPRESSION [None]
